FAERS Safety Report 8306991-0 (Version None)
Quarter: 2012Q2

REPORT INFORMATION
  Report Type: 
  Country: None (occurrence: None)
  Receive Date: 20120424
  Receipt Date: 20120410
  Transmission Date: 20120825
  Serious: Yes (Other)
  Sender: FDA-Public Use
  Company Number: PHHY2011KR113187

PATIENT
  Sex: Male
  Weight: 71 kg

DRUGS (2)
  1. EXJADE [Suspect]
     Indication: APLASTIC ANAEMIA
     Dosage: 1500 MG PER DAY
     Route: 048
     Dates: start: 20080822
  2. EXJADE [Suspect]
     Indication: IRON OVERLOAD

REACTIONS (6)
  - OCULAR ICTERUS [None]
  - ASPARTATE AMINOTRANSFERASE INCREASED [None]
  - ALANINE AMINOTRANSFERASE INCREASED [None]
  - HAEMOLYSIS [None]
  - SERUM FERRITIN INCREASED [None]
  - HAEMATURIA [None]
